FAERS Safety Report 5370308-4 (Version None)
Quarter: 2007Q2

REPORT INFORMATION
  Report Type: 
  Country: None (occurrence: None)
  Receive Date: 20070625
  Receipt Date: 20070625
  Transmission Date: 20071010
  Serious: Yes (Other)
  Sender: FDA-Public Use
  Company Number: None

PATIENT
  Age: 52 Year
  Sex: Female
  Weight: 58.9676 kg

DRUGS (2)
  1. NEUTROGENA ULTRA SHEER DRY-TOUCH SUNBLOCK SPF 55 [Suspect]
     Indication: DRUG THERAPY
     Dosage: ONCE/DAY ONE FACE, NECK, ARMS, LEGS
     Dates: start: 20070515, end: 20070610
  2. NEUTROGENA ULTRA SHEER DRY-TOUCH SUNBLOCK SPF 70 [Suspect]
     Indication: DRUG THERAPY
     Dosage: ONCE/DAY ON FACE, NECK, ARMS, LEGS
     Dates: start: 20070515, end: 20070610

REACTIONS (6)
  - BURNING SENSATION [None]
  - ERYTHEMA [None]
  - PAIN [None]
  - PHARMACEUTICAL PRODUCT COMPLAINT [None]
  - SKIN CHAPPED [None]
  - SKIN EXFOLIATION [None]
